FAERS Safety Report 7960909-9 (Version None)
Quarter: 2011Q4

REPORT INFORMATION
  Report Type: 
  Country: None (occurrence: None)
  Receive Date: 20111201
  Receipt Date: 20111201
  Transmission Date: 20120403
  Serious: Yes (Other)
  Sender: FDA-Public Use
  Company Number: None

PATIENT
  Age: 84 Year
  Sex: Male
  Weight: 58.9676 kg

DRUGS (1)
  1. METOCLOPRAMIDE [Suspect]
     Dosage: 5 MG 1 PILL DAILY
     Dates: start: 20100412, end: 20111001

REACTIONS (4)
  - HYPOKINESIA [None]
  - TREMOR [None]
  - MASTICATION DISORDER [None]
  - BRUXISM [None]
